FAERS Safety Report 4380388-0 (Version None)
Quarter: 2004Q2

REPORT INFORMATION
  Report Type: 
  Country: None (occurrence: None)
  Receive Date: 20040618
  Receipt Date: 20040611
  Transmission Date: 20050107
  Serious: Yes (Hospitalization)
  Sender: FDA-Public Use
  Company Number: US-BRISTOL-MYERS SQUIBB COMPANY-12612966

PATIENT
  Age: 45 Year
  Sex: Male
  Weight: 163 kg

DRUGS (7)
  1. GLUCOPHAGE XR [Suspect]
     Indication: DIABETES MELLITUS
     Route: 048
  2. DIOVAN [Concomitant]
  3. GLUCOTROL XL [Concomitant]
  4. AVANDIA [Concomitant]
  5. TOPROL-XL [Concomitant]
  6. VIOXX [Concomitant]
  7. ZYRTEC [Concomitant]

REACTIONS (2)
  - FLATULENCE [None]
  - PNEUMONIA [None]
